APPROVED DRUG PRODUCT: BROMFENAC SODIUM
Active Ingredient: BROMFENAC SODIUM
Strength: EQ 0.09% ACID
Dosage Form/Route: SOLUTION/DROPS;OPHTHALMIC
Application: A202030 | Product #001
Applicant: AMRING PHARMACEUTICALS INC
Approved: Jan 9, 2013 | RLD: No | RS: No | Type: DISCN